FAERS Safety Report 8642798 (Version 4)
Quarter: 2013Q1

REPORT INFORMATION
  Report Type: Spontaneous
  Country: US (occurrence: US)
  Receive Date: 20120629
  Receipt Date: 20130107
  Transmission Date: 20140127
  Serious: Yes (Hospitalization)
  Sender: FDA-Public Use
  Company Number: US-SANOFI-AVENTIS-2012SA044780

PATIENT
  Age: 67 Year
  Sex: Male
  Weight: 93 kg

DRUGS (23)
  1. PLAVIX [Suspect]
     Indication: CORONARY ARTERY DISEASE
     Route: 048
     Dates: start: 201112, end: 20120411
  2. PLAVIX [Suspect]
     Indication: ANGIOPLASTY
     Route: 048
     Dates: start: 201112, end: 20120411
  3. AMBIEN [Suspect]
     Indication: PRODUCT USED FOR UNKNOWN INDICATION
     Route: 048
     Dates: start: 201009, end: 20120411
  4. ASPIRIN [Suspect]
     Indication: PRODUCT USED FOR UNKNOWN INDICATION
  5. ASPIRIN [Suspect]
     Indication: PRODUCT USED FOR UNKNOWN INDICATION
  6. VICODIN [Suspect]
     Indication: PRODUCT USED FOR UNKNOWN INDICATION
     Route: 065
     Dates: start: 201008
  7. AVODART [Concomitant]
     Indication: BENIGN PROSTATIC HYPERPLASIA
  8. COREG [Concomitant]
  9. COREG [Concomitant]
  10. CRESTOR /UNK/ [Concomitant]
     Indication: HYPERLIPIDAEMIA
  11. DIAZEPAM [Concomitant]
  12. NEURONTIN [Concomitant]
     Indication: NEUROPATHY PERIPHERAL
  13. HYDROCHLOROTHIAZIDE [Concomitant]
  14. SYNTHROID [Concomitant]
     Indication: HYPOTHYROIDISM
  15. SYNTHROID [Concomitant]
     Indication: HYPOTHYROIDISM
  16. AMIODARONE [Concomitant]
     Route: 048
  17. CENTRUM SILVER [Concomitant]
  18. VITAMIN D3 [Concomitant]
  19. COUMADIN [Concomitant]
  20. ZESTRIL [Concomitant]
     Route: 048
  21. VALIUM [Concomitant]
     Route: 048
  22. ATORVASTATIN [Concomitant]
  23. GLUCOSAMINE [Concomitant]
     Route: 048

REACTIONS (10)
  - Fall [Recovered/Resolved]
  - Cervical vertebral fracture [Recovered/Resolved]
  - Rib fracture [Recovered/Resolved]
  - Subarachnoid haemorrhage [Recovered/Resolved]
  - Amnesia [Unknown]
  - Haematoma [Recovered/Resolved]
  - Contusion [Recovered/Resolved]
  - Concussion [Unknown]
  - Laceration [Unknown]
  - Headache [Unknown]
